APPROVED DRUG PRODUCT: ZEGERID
Active Ingredient: OMEPRAZOLE; SODIUM BICARBONATE
Strength: 40MG/PACKET;1.68GM/PACKET **Federal Register determination that product was not discontinued or withdrawn for safety or effectiveness reasons**
Dosage Form/Route: FOR SUSPENSION;ORAL
Application: N021636 | Product #002
Applicant: SALIX PHARMACEUTICALS INC
Approved: Dec 21, 2004 | RLD: Yes | RS: No | Type: DISCN